FAERS Safety Report 21859014 (Version 1)
Quarter: 2023Q1

REPORT INFORMATION
  Report Type: Spontaneous
  Country: CN (occurrence: CN)
  Receive Date: 20230113
  Receipt Date: 20230113
  Transmission Date: 20230417
  Serious: Yes (Hospitalization, Disabling, Other)
  Sender: FDA-Public Use
  Company Number: CN-SA-SAC20230103000703

PATIENT
  Age: 23 Year
  Sex: Male
  Weight: 50 kg

DRUGS (2)
  1. ZOLPIDEM TARTRATE [Suspect]
     Active Substance: ZOLPIDEM TARTRATE
     Dosage: UNK
     Route: 048
     Dates: start: 2018, end: 20220601
  2. ZOLPIDEM TARTRATE [Suspect]
     Active Substance: ZOLPIDEM TARTRATE
     Dosage: 20 TABLET, QD
     Route: 048
     Dates: start: 20220601, end: 20220825

REACTIONS (7)
  - Depressed level of consciousness [Recovering/Resolving]
  - Disorganised speech [Recovering/Resolving]
  - Eating disorder [Recovering/Resolving]
  - Loss of personal independence in daily activities [Recovering/Resolving]
  - Hallucination, visual [Recovering/Resolving]
  - Drug abuse [Unknown]
  - Drug dependence [Unknown]

NARRATIVE: CASE EVENT DATE: 20220825
